FAERS Safety Report 9712167 (Version 1)
Quarter: 2013Q4

REPORT INFORMATION
  Report Type: Spontaneous
  Country: US (occurrence: None)
  Receive Date: 20131125
  Receipt Date: 20131125
  Transmission Date: 20140711
  Serious: Yes (Other)
  Sender: FDA-Public Use
  Company Number: None

PATIENT
  Age: 44 Year
  Sex: Male
  Weight: 68.04 kg

DRUGS (1)
  1. VENLAFAXINE HCL [Suspect]
     Indication: DEPRESSION
     Dosage: 3 PER DAY; ONCE DAILY
     Route: 048

REACTIONS (8)
  - Drug ineffective [None]
  - Product quality issue [None]
  - Product substitution issue [None]
  - Drug withdrawal headache [None]
  - Dizziness [None]
  - Diplopia [None]
  - Product physical issue [None]
  - Product formulation issue [None]
